FAERS Safety Report 18643155 (Version 2)
Quarter: 2021Q1

REPORT INFORMATION
  Report Type: Spontaneous
  Country: US (occurrence: US)
  Receive Date: 20201221
  Receipt Date: 20210104
  Transmission Date: 20210419
  Serious: Yes (Other)
  Sender: FDA-Public Use
  Company Number: US-ROCHE-2735051

PATIENT
  Sex: Female
  Weight: 77 kg

DRUGS (1)
  1. ROZLYTREK [Suspect]
     Active Substance: ENTRECTINIB
     Indication: NON-SMALL CELL LUNG CANCER
     Dosage: DAILY
     Route: 048
     Dates: start: 20201026, end: 20201217

REACTIONS (3)
  - Pericardial effusion [Unknown]
  - Vena cava thrombosis [Unknown]
  - Cardiomyopathy [Unknown]
